FAERS Safety Report 18070120 (Version 1)
Quarter: 2020Q3

REPORT INFORMATION
  Report Type: Spontaneous
  Country: FR (occurrence: FR)
  Receive Date: 20200727
  Receipt Date: 20200727
  Transmission Date: 20201103
  Serious: Yes (Hospitalization, Other)
  Sender: FDA-Public Use
  Company Number: FR-AUROBINDO-AUR-APL-2020-036563

PATIENT
  Age: 11 Year
  Sex: Male
  Weight: 36.7 kg

DRUGS (2)
  1. VORICONAZOLE. [Suspect]
     Active Substance: VORICONAZOLE
     Indication: ASPERGILLUS INFECTION
     Dosage: 8 MILLIGRAM/KILOGRAM, TWO TIMES A DAY
     Route: 042
     Dates: start: 20200602, end: 20200626
  2. ERTAPENEM. [Suspect]
     Active Substance: ERTAPENEM SODIUM
     Indication: FEBRILE BONE MARROW APLASIA
     Dosage: 15 MILLIGRAM/KILOGRAM, TWO TIMES A DAY
     Route: 042
     Dates: start: 20200625, end: 20200630

REACTIONS (2)
  - Papilloedema [Recovered/Resolved]
  - Generalised tonic-clonic seizure [Recovered/Resolved]

NARRATIVE: CASE EVENT DATE: 20200630
